FAERS Safety Report 25370468 (Version 1)
Quarter: 2025Q2

REPORT INFORMATION
  Report Type: Spontaneous
  Country: US (occurrence: US)
  Receive Date: 20250528
  Receipt Date: 20250528
  Transmission Date: 20250717
  Serious: No
  Sender: SANOFI AVENTIS
  Company Number: US-SA-2025SA150539

PATIENT
  Age: 28 Year
  Sex: Male

DRUGS (2)
  1. DUPIXENT [Suspect]
     Active Substance: DUPILUMAB
     Indication: Dermatitis atopic
     Route: 058
     Dates: start: 20230202, end: 20250430
  2. FINASTERIDE [Concomitant]
     Active Substance: FINASTERIDE

REACTIONS (1)
  - Skin irritation [Unknown]

NARRATIVE: CASE EVENT DATE: 20250101
